FAERS Safety Report 4800594-8 (Version None)
Quarter: 2005Q4

REPORT INFORMATION
  Report Type: 
  Country: None (occurrence: None)
  Receive Date: 20051017
  Receipt Date: 20051012
  Transmission Date: 20060501
  Serious: Yes (Other)
  Sender: FDA-Public Use
  Company Number: JP-BRACCO-BRO-009131

PATIENT
  Age: 57 Year
  Sex: Male

DRUGS (3)
  1. IOPAMIRON [Suspect]
     Indication: ABDOMINAL PAIN
     Route: 042
     Dates: start: 20040301, end: 20040301
  2. IOPAMIRON [Suspect]
     Route: 042
     Dates: start: 20040301, end: 20040301
  3. METHYLPREDNISOLONE [Concomitant]
     Route: 050

REACTIONS (4)
  - ACUTE MYOCARDIAL INFARCTION [None]
  - ANAPHYLACTOID REACTION [None]
  - ARTERIOSPASM CORONARY [None]
  - CORONARY ARTERY OCCLUSION [None]
